FAERS Safety Report 7345299-7 (Version None)
Quarter: 2011Q1

REPORT INFORMATION
  Report Type: 
  Country: None (occurrence: None)
  Receive Date: 20110310
  Receipt Date: 20110209
  Transmission Date: 20110831
  Serious: Yes (Hospitalization, Disabling)
  Sender: FDA-Public Use
  Company Number: US-ASTRAZENECA-2011SE07442

PATIENT
  Age: 626 Month
  Sex: Male
  Weight: 83.9 kg

DRUGS (10)
  1. SEROQUEL [Suspect]
     Indication: SCHIZOAFFECTIVE DISORDER
     Route: 048
     Dates: start: 19990101
  2. PAXIL [Concomitant]
     Route: 065
  3. SEROQUEL [Suspect]
     Indication: BIPOLAR DISORDER
     Route: 048
     Dates: start: 19990101
  4. SEROQUEL [Suspect]
     Route: 048
     Dates: start: 19990101
  5. LORTAB [Concomitant]
     Route: 065
  6. SEROQUEL [Suspect]
     Route: 048
     Dates: start: 19990101
  7. TRAMADOL [Concomitant]
     Route: 065
  8. SEROQUEL [Suspect]
     Route: 048
  9. SEROQUEL [Suspect]
     Route: 048
  10. AN ANXIETY MEDICATION [Concomitant]
     Route: 065

REACTIONS (11)
  - TOOTH LOSS [None]
  - AMNESIA [None]
  - DELUSION [None]
  - ASTHENIA [None]
  - ANXIETY [None]
  - TRAUMATIC BRAIN INJURY [None]
  - HEMIPARESIS [None]
  - BLOOD PRESSURE ORTHOSTATIC [None]
  - FATIGUE [None]
  - HALLUCINATION, AUDITORY [None]
  - BLINDNESS UNILATERAL [None]
